FAERS Safety Report 24410965 (Version 1)
Quarter: 2024Q4

REPORT INFORMATION
  Report Type: Spontaneous
  Country: US (occurrence: US)
  Receive Date: 20241008
  Receipt Date: 20241008
  Transmission Date: 20250115
  Serious: Yes (Death, Hospitalization)
  Sender: MYLAN
  Company Number: US-MYLANLABS-2024M1091242

PATIENT
  Age: 68 Year
  Sex: Female

DRUGS (14)
  1. VERAPAMIL [Suspect]
     Active Substance: VERAPAMIL HYDROCHLORIDE
     Indication: Suicide attempt
     Dosage: UNK
     Route: 065
  2. VERAPAMIL [Suspect]
     Active Substance: VERAPAMIL HYDROCHLORIDE
     Indication: Hypertension
  3. EPINEPHRINE [Suspect]
     Active Substance: EPINEPHRINE
     Indication: BRASH syndrome
     Dosage: UNK, INFUSION
     Route: 065
  4. NOREPINEPHRINE [Suspect]
     Active Substance: NOREPINEPHRINE\NOREPINEPHRINE BITARTRATE
     Indication: BRASH syndrome
     Dosage: UNK, INFUSION
     Route: 065
  5. ATROPINE [Suspect]
     Active Substance: ATROPINE
     Indication: BRASH syndrome
     Dosage: UNK
     Route: 065
  6. CALCIUM [Suspect]
     Active Substance: CALCIUM
     Indication: BRASH syndrome
     Dosage: UNK
     Route: 042
  7. DEXTROSE [Suspect]
     Active Substance: DEXTROSE MONOHYDRATE
     Indication: BRASH syndrome
     Dosage: UNK, INFUSION
     Route: 065
  8. DOPAMINE [Suspect]
     Active Substance: DOPAMINE HYDROCHLORIDE
     Indication: BRASH syndrome
     Dosage: UNK, INFUSION
     Route: 065
  9. FAT EMULSION NOS [Suspect]
     Active Substance: EGG PHOSPHOLIPIDS\SAFFLOWER OIL\SOYBEAN OIL
     Indication: BRASH syndrome
     Dosage: UNK
     Route: 042
  10. GLUCAGON [Suspect]
     Active Substance: GLUCAGON
     Indication: BRASH syndrome
     Dosage: UNK
     Route: 042
  11. INSULIN NOS [Suspect]
     Active Substance: INSULIN NOS
     Indication: BRASH syndrome
     Dosage: UNK
     Route: 065
  12. SODIUM BICARBONATE [Suspect]
     Active Substance: SODIUM BICARBONATE
     Indication: BRASH syndrome
     Dosage: UNK
     Route: 042
  13. VASOPRESSIN [Suspect]
     Active Substance: VASOPRESSIN
     Indication: BRASH syndrome
     Dosage: UNK, INFUSION
     Route: 065
  14. LISINOPRIL [Concomitant]
     Active Substance: LISINOPRIL
     Indication: Hypertension
     Dosage: UNK
     Route: 065

REACTIONS (7)
  - BRASH syndrome [Fatal]
  - Intentional overdose [Fatal]
  - Suicide attempt [Fatal]
  - Drug ineffective [Fatal]
  - Shock [Fatal]
  - Renal failure [Fatal]
  - Intestinal ischaemia [Fatal]
